FAERS Safety Report 8522332-8 (Version None)
Quarter: 2012Q3

REPORT INFORMATION
  Report Type: 
  Country: None (occurrence: None)
  Receive Date: 20120719
  Receipt Date: 20120712
  Transmission Date: 20120928
  Serious: Yes (Other)
  Sender: FDA-Public Use
  Company Number: US-US-EMD SERONO, INC.-7029202

PATIENT
  Sex: Male

DRUGS (2)
  1. STEROIDS [Concomitant]
     Indication: CROHN'S DISEASE
     Route: 042
  2. REBIF [Suspect]
     Indication: MULTIPLE SCLEROSIS
     Route: 058
     Dates: start: 20100807

REACTIONS (2)
  - HEPATIC ENZYME INCREASED [None]
  - CROHN'S DISEASE [None]
